FAERS Safety Report 9472814 (Version 2)
Quarter: 2013Q3

REPORT INFORMATION
  Report Type: Report from Study
  Country: AR (occurrence: AR)
  Receive Date: 20130823
  Receipt Date: 20130823
  Transmission Date: 20140515
  Serious: Yes (Hospitalization)
  Sender: FDA-Public Use
  Company Number: PHHO2010AR10029

PATIENT
  Age: 53 Year
  Sex: Male
  Weight: 84 kg

DRUGS (7)
  1. PLACEBO [Suspect]
     Indication: CORONARY ARTERY DISEASE
     Dosage: UNK
     Route: 048
     Dates: start: 20100408
  2. ALISKIREN [Suspect]
     Indication: CORONARY ARTERY DISEASE
     Dosage: 150 MG, UNK
  3. ASPIRIN [Concomitant]
     Indication: CORONARY ARTERY DISEASE
     Dosage: UNK
  4. CLOPIDOGREL [Concomitant]
     Indication: CORONARY ARTERY DISEASE
     Dosage: UNK
  5. ATENOLOL [Concomitant]
     Indication: CORONARY ARTERY DISEASE
     Dosage: UNK
  6. ATORVASTATIN [Concomitant]
     Indication: DYSLIPIDAEMIA
     Dosage: UNK
  7. ENALAPRIL [Concomitant]
     Indication: HYPERTENSION
     Dosage: UNK

REACTIONS (3)
  - Coronary artery disease [Recovered/Resolved]
  - Angina unstable [Recovered/Resolved]
  - Myocardial infarction [Recovered/Resolved]
